FAERS Safety Report 6725552-8 (Version None)
Quarter: 2010Q2

REPORT INFORMATION
  Report Type: 
  Country: None (occurrence: None)
  Receive Date: 20100514
  Receipt Date: 20100505
  Transmission Date: 20101027
  Serious: Yes (Other)
  Sender: FDA-Public Use
  Company Number: AU-PFIZER INC-2010056767

PATIENT
  Sex: Female

DRUGS (1)
  1. CLEOCIN [Suspect]
     Indication: PROPHYLAXIS
     Dosage: UNK
     Dates: start: 20100331, end: 20100404

REACTIONS (6)
  - ABDOMINAL PAIN [None]
  - DECREASED APPETITE [None]
  - DIARRHOEA [None]
  - HAEMORRHAGE SUBCUTANEOUS [None]
  - HYPERHIDROSIS [None]
  - WEIGHT DECREASED [None]
